FAERS Safety Report 5619312-9 (Version None)
Quarter: 2008Q1

REPORT INFORMATION
  Report Type: 
  Country: None (occurrence: None)
  Receive Date: 20080114
  Receipt Date: 20070308
  Transmission Date: 20080703
  Serious: Yes (Hospitalization)
  Sender: FDA-Public Use
  Company Number: A03200701930

PATIENT
  Age: 78 Year
  Sex: Female
  Weight: 65.76 kg

DRUGS (5)
  1. PLAVIX [Suspect]
     Indication: STENT PLACEMENT
     Dosage: 75 MG QD - ORAL
     Route: 048
     Dates: start: 20070214, end: 20070301
  2. PLAVIX [Suspect]
     Indication: STENT PLACEMENT
     Dosage: 0.5 DF BID - ORAL
     Route: 048
  3. GLIPIZIDE [Concomitant]
  4. VERAPAMIL [Concomitant]
  5. ALPRAZOLAM [Concomitant]

REACTIONS (2)
  - DIARRHOEA [None]
  - PAIN [None]
